FAERS Safety Report 9203252 (Version 2)
Quarter: 2013Q2

REPORT INFORMATION
  Report Type: Spontaneous
  Country: US (occurrence: US)
  Receive Date: 20130402
  Receipt Date: 20130415
  Transmission Date: 20140414
  Serious: Yes (Life-Threatening, Other)
  Sender: FDA-Public Use
  Company Number: US-ACCORD-016985

PATIENT
  Age: 86 Year
  Sex: Male
  Weight: 100.91 kg

DRUGS (10)
  1. GEMCITABINE [Suspect]
     Indication: SQUAMOUS CELL CARCINOMA OF HEAD AND NECK
     Dosage: ACCORD^S GEMCITABINE BY IV PIGGY BACK
     Route: 042
     Dates: start: 20130131
  2. LISINOPRIL [Concomitant]
  3. AMLODIPINE [Concomitant]
  4. ATENOLOL [Concomitant]
  5. ZOFRAN [Concomitant]
  6. MTV [Concomitant]
  7. PRAVACHOL [Concomitant]
  8. RAPAFLO [Concomitant]
  9. COMPAZINE [Concomitant]
  10. INSULIN [Concomitant]

REACTIONS (3)
  - Renal failure acute [Recovered/Resolved]
  - Off label use [Unknown]
  - Oedema [Unknown]
